FAERS Safety Report 8192435-9 (Version None)
Quarter: 2012Q1

REPORT INFORMATION
  Report Type: 
  Country: None (occurrence: None)
  Receive Date: 20120308
  Receipt Date: 20120302
  Transmission Date: 20120608
  Serious: No
  Sender: FDA-Public Use
  Company Number: US-BIOGENIDEC-2011BI023291

PATIENT
  Age: 28 Year
  Sex: Male

DRUGS (2)
  1. TYSABRI [Suspect]
     Indication: MULTIPLE SCLEROSIS
     Route: 042
     Dates: start: 20080105, end: 20100911
  2. TYSABRI [Suspect]
     Route: 042
     Dates: start: 20110214

REACTIONS (9)
  - RASH [None]
  - MUSCLE SPASTICITY [None]
  - MENTAL IMPAIRMENT [None]
  - MUSCLE SPASMS [None]
  - ASTHENIA [None]
  - RASH MACULAR [None]
  - SUNBURN [None]
  - ERYTHEMA [None]
  - VISUAL IMPAIRMENT [None]
